FAERS Safety Report 13038828 (Version 1)
Quarter: 2016Q4

REPORT INFORMATION
  Report Type: Spontaneous
  Country: US (occurrence: US)
  Receive Date: 20161219
  Receipt Date: 20161219
  Transmission Date: 20170207
  Serious: No
  Sender: FDA-Public Use
  Company Number: US-DRREDDYS-USA/USA/16/0055262

PATIENT
  Age: 72 Year
  Sex: Male
  Weight: 99.7 kg

DRUGS (1)
  1. OMEPRAZOLE DELAYED RELEASE CAPSULES 20 MG [Suspect]
     Active Substance: OMEPRAZOLE
     Indication: GASTROOESOPHAGEAL REFLUX DISEASE
     Route: 048

REACTIONS (3)
  - Somnolence [Recovered/Resolved]
  - Feeling of relaxation [Recovered/Resolved]
  - Chromaturia [Not Recovered/Not Resolved]
